FAERS Safety Report 4360152-9 (Version None)
Quarter: 2004Q2

REPORT INFORMATION
  Report Type: 
  Country: None (occurrence: None)
  Receive Date: 20040513
  Receipt Date: 20040430
  Transmission Date: 20050107
  Serious: Yes (Death)
  Sender: FDA-Public Use
  Company Number: 163-20785-04040268

PATIENT
  Age: 74 Year
  Sex: Male

DRUGS (1)
  1. THALOMID [Suspect]
     Indication: DRUG USE FOR UNKNOWN INDICATION
     Dosage: 100 MG, Q.D., ORAL
     Route: 048
     Dates: start: 20040317

REACTIONS (4)
  - BLAST CELL CRISIS [None]
  - CHOLECYSTITIS [None]
  - PAIN [None]
  - PNEUMONIA [None]
